FAERS Safety Report 20057634 (Version 3)
Quarter: 2022Q4

REPORT INFORMATION
  Report Type: Spontaneous
  Country: US (occurrence: US)
  Receive Date: 20211111
  Receipt Date: 20221101
  Transmission Date: 20230113
  Serious: Yes (Hospitalization, Other)
  Sender: FDA-Public Use
  Company Number: US-Recordati Rare Diseases Inc.-US-R13005-18-00240

PATIENT
  Sex: Male
  Weight: 72.562 kg

DRUGS (11)
  1. PANHEMATIN [Suspect]
     Active Substance: HEMIN
     Indication: Porphyria acute
     Dosage: 350 MILLIGRAM, ONCE A WEEK
     Route: 042
     Dates: start: 2016
  2. PANHEMATIN [Suspect]
     Active Substance: HEMIN
     Dosage: 350 MILLIGRAM, QM
     Route: 042
  3. PANHEMATIN [Suspect]
     Active Substance: HEMIN
     Dosage: 350 MILLIGRAM TWICE A WEEK
     Route: 042
  4. OMEPRAZOLE [Concomitant]
     Active Substance: OMEPRAZOLE
     Indication: Product used for unknown indication
     Dosage: UNK UNK, UNK
     Route: 065
  5. CREON [Concomitant]
     Active Substance: PANCRELIPASE AMYLASE\PANCRELIPASE LIPASE\PANCRELIPASE PROTEASE
     Indication: Product used for unknown indication
     Dosage: UNK UNK, UNK
     Route: 065
  6. LISINOPRIL [Concomitant]
     Active Substance: LISINOPRIL
     Indication: Hypertension
     Dosage: UNK UNK, UNK
     Route: 065
  7. ASPIRIN [Concomitant]
     Active Substance: ASPIRIN
     Indication: Phlebitis
     Dosage: UNK UNK, UNK
     Route: 065
  8. XARELTO [Concomitant]
     Active Substance: RIVAROXABAN
     Indication: Pulmonary embolism
     Dosage: UNK UNK, UNK
     Route: 065
  9. ZOFRAN [Concomitant]
     Active Substance: ONDANSETRON HYDROCHLORIDE
     Indication: Nausea
     Dosage: UNK UNK, UNK
     Route: 065
  10. CARAFATE [Concomitant]
     Active Substance: SUCRALFATE
     Indication: Peptic ulcer
     Dosage: UNK UNK, UNK
     Route: 065
  11. MORPHINE [Concomitant]
     Active Substance: MORPHINE
     Indication: Product used for unknown indication
     Dosage: 20 MILLIGRAM, EVERY 4 HOURS
     Route: 041

REACTIONS (8)
  - Pain [Recovered/Resolved]
  - Porphyria [Recovered/Resolved]
  - Platelet disorder [Unknown]
  - Treatment delayed [Recovered/Resolved]
  - Therapy change [Unknown]
  - Device occlusion [Unknown]
  - Off label use [Unknown]
  - Product quality issue [Unknown]

NARRATIVE: CASE EVENT DATE: 20160101
